FAERS Safety Report 4983998-2 (Version None)
Quarter: 2006Q1

REPORT INFORMATION
  Report Type: 
  Country: None (occurrence: None)
  Receive Date: 20060301
  Receipt Date: 20051205
  Transmission Date: 20060701
  Serious: No
  Sender: FDA-Public Use
  Company Number: S05-USA-05173-01

PATIENT
  Age: 69 Year
  Sex: Female

DRUGS (4)
  1. NAMENDA [Suspect]
     Indication: NERVOUS SYSTEM DISORDER
     Dosage: 5 MG QD PO
     Route: 048
     Dates: start: 20051201
  2. ARICEPT [Concomitant]
  3. ATENOLOL [Concomitant]
  4. DETROL [Concomitant]

REACTIONS (2)
  - FALL [None]
  - SPEECH DISORDER [None]
